FAERS Safety Report 8612128-0 (Version None)
Quarter: 2012Q3

REPORT INFORMATION
  Report Type: 
  Country: None (occurrence: None)
  Receive Date: 20120822
  Receipt Date: 20120813
  Transmission Date: 20120928
  Serious: No
  Sender: FDA-Public Use
  Company Number: US-PFIZER INC-2012197706

PATIENT
  Age: 54 Year
  Sex: Male
  Weight: 91.156 kg

DRUGS (3)
  1. VIAGRA [Suspect]
     Indication: ERECTILE DYSFUNCTION
     Dosage: 50 MG, UNK
     Route: 048
     Dates: start: 20120701
  2. LOVASTATIN [Concomitant]
     Indication: BLOOD CHOLESTEROL ABNORMAL
     Dosage: 20 MG, 1X/DAY
  3. ATENOLOL [Concomitant]
     Indication: BLOOD PRESSURE ABNORMAL
     Dosage: HALF TABLET DAILY
     Route: 048

REACTIONS (3)
  - HYPERHIDROSIS [None]
  - DISTURBANCE IN SEXUAL AROUSAL [None]
  - DRUG INEFFECTIVE [None]
